FAERS Safety Report 20905339 (Version 2)
Quarter: 2022Q2

REPORT INFORMATION
  Report Type: Spontaneous
  Country: US (occurrence: US)
  Receive Date: 20220602
  Receipt Date: 20220608
  Transmission Date: 20220721
  Serious: No
  Sender: FDA-Public Use
  Company Number: US-UNITED THERAPEUTICS-UNT-2022-011715

PATIENT
  Age: 76 Year
  Sex: Male

DRUGS (2)
  1. TYVASO [Suspect]
     Active Substance: TREPROSTINIL
     Indication: Pulmonary arterial hypertension
     Dosage: UNK
     Dates: start: 20220520
  2. TYVASO [Suspect]
     Active Substance: TREPROSTINIL
     Dosage: 18 ?G, QID
     Dates: start: 202205

REACTIONS (10)
  - Dizziness [Unknown]
  - Cough [Unknown]
  - Hypotension [Unknown]
  - Fatigue [Unknown]
  - Insomnia [Unknown]
  - Drug intolerance [Unknown]
  - Oedema [Unknown]
  - Oropharyngeal pain [Unknown]
  - Dizziness postural [Unknown]
  - Incorrect dose administered [Recovered/Resolved]

NARRATIVE: CASE EVENT DATE: 20220501
